FAERS Safety Report 21746444 (Version 1)
Quarter: 2022Q4

REPORT INFORMATION
  Report Type: Spontaneous
  Country: FR (occurrence: FR)
  Receive Date: 20221219
  Receipt Date: 20221219
  Transmission Date: 20230113
  Serious: Yes (Other)
  Sender: FDA-Public Use
  Company Number: FR-WOCKHARDT BIO AG-2022WBA000222

PATIENT
  Age: 4 Year
  Sex: Female

DRUGS (4)
  1. AMOXICILLIN TRIHYDRATE [Suspect]
     Active Substance: AMOXICILLIN
     Indication: Arthritis bacterial
     Dosage: 3.5 MILLIGRAM
     Route: 065
  2. AMOXICILLIN\CLAVULANATE POTASSIUM [Suspect]
     Active Substance: AMOXICILLIN\CLAVULANATE POTASSIUM
     Indication: Arthritis bacterial
     Dosage: UNK
     Route: 048
  3. CEFUROXIME [Concomitant]
     Active Substance: CEFUROXIME
     Indication: Arthritis bacterial
     Dosage: UNK
     Route: 042
  4. CEFPODOXIME [Concomitant]
     Active Substance: CEFPODOXIME
     Indication: Ear infection
     Dosage: UNK
     Route: 065

REACTIONS (2)
  - Enterocolitis [Recovered/Resolved]
  - Product use in unapproved indication [Unknown]
